FAERS Safety Report 9013696 (Version 1)
Quarter: 2013Q1

REPORT INFORMATION
  Report Type: Spontaneous
  Country: AR (occurrence: AR)
  Receive Date: 20130115
  Receipt Date: 20130115
  Transmission Date: 20140127
  Serious: Yes (Other)
  Sender: FDA-Public Use
  Company Number: PHHY2013AR002089

PATIENT
  Sex: Female

DRUGS (2)
  1. FEMARA [Suspect]
     Indication: BREAST NEOPLASM
     Dosage: 2.5 MG, UNK
     Route: 048
     Dates: start: 2008, end: 201210
  2. LIORESAL [Concomitant]
     Dosage: 10 MG, UNK
     Route: 048
     Dates: start: 201204, end: 201212

REACTIONS (10)
  - Pulmonary mass [Recovering/Resolving]
  - Bone disorder [Recovering/Resolving]
  - Thyroid disorder [Recovering/Resolving]
  - Hypersensitivity [Recovering/Resolving]
  - Hypokinesia [Recovering/Resolving]
  - Vitamin B complex deficiency [Recovering/Resolving]
  - Hypertension [Recovering/Resolving]
  - Cerebrovascular accident [Recovering/Resolving]
  - Fatigue [Recovering/Resolving]
  - Cough [Recovering/Resolving]
